FAERS Safety Report 21095300 (Version 1)
Quarter: 2022Q3

REPORT INFORMATION
  Report Type: Spontaneous
  Country: US (occurrence: None)
  Receive Date: 20220717
  Receipt Date: 20220717
  Transmission Date: 20221027
  Serious: Yes (Hospitalization)
  Sender: FDA-Public Use
  Company Number: None

PATIENT
  Age: 72 Year
  Sex: Male
  Weight: 112.5 kg

DRUGS (1)
  1. TRELEGY ELLIPTA [Suspect]
     Active Substance: FLUTICASONE FUROATE\UMECLIDINIUM BROMIDE\VILANTEROL TRIFENATATE
     Indication: Upper respiratory tract congestion
     Dosage: FREQUENCY : DAILY;?
     Route: 048
     Dates: start: 20220613

REACTIONS (7)
  - Dysphonia [None]
  - Oropharyngeal pain [None]
  - Ear pain [None]
  - Dysphagia [None]
  - Aphonia [None]
  - Parapharyngeal space infection [None]
  - Candida infection [None]

NARRATIVE: CASE EVENT DATE: 20220705
